FAERS Safety Report 5862544-5 (Version None)
Quarter: 2008Q3

REPORT INFORMATION
  Report Type: 
  Country: None (occurrence: None)
  Receive Date: 20080827
  Receipt Date: 20080827
  Transmission Date: 20090109
  Serious: Yes (Hospitalization)
  Sender: FDA-Public Use
  Company Number: None

PATIENT
  Age: 55 Year
  Sex: Female
  Weight: 102.0593 kg

DRUGS (1)
  1. BYETTA [Suspect]
     Indication: TYPE 2 DIABETES MELLITUS
     Dosage: 10 TWICE A DAY
     Dates: start: 20071001, end: 20080816

REACTIONS (5)
  - HYPOPHAGIA [None]
  - MALAISE [None]
  - NAUSEA [None]
  - PAIN [None]
  - PANCREATIC DISORDER [None]
